FAERS Safety Report 17327522 (Version 4)
Quarter: 2020Q1

REPORT INFORMATION
  Report Type: Spontaneous
  Country: US (occurrence: US)
  Receive Date: 20200127
  Receipt Date: 20200327
  Transmission Date: 20200409
  Serious: Yes (Other)
  Sender: FDA-Public Use
  Company Number: US-AKORN PHARMACEUTICALS-2020AKN00090

PATIENT
  Age: 15 Year
  Sex: Male
  Weight: 75.2 kg

DRUGS (7)
  1. MYORISAN [Suspect]
     Active Substance: ISOTRETINOIN
     Dosage: ALTERNATE 40/80 MG DAILY
     Dates: start: 20190709, end: 20190815
  2. OXCARBAZEPINE. [Concomitant]
     Active Substance: OXCARBAZEPINE
     Dosage: 900 MG, 2X/DAY
  3. CEPHALEXIN. [Concomitant]
     Active Substance: CEPHALEXIN
     Dosage: 500 MG, 2X/DAY
  4. MYORISAN [Suspect]
     Active Substance: ISOTRETINOIN
     Dosage: UNK
     Dates: start: 202002
  5. MYORISAN [Suspect]
     Active Substance: ISOTRETINOIN
     Dosage: ALTERNATE 40/80 MG DAILY
     Dates: start: 20190926, end: 20200114
  6. MYORISAN [Suspect]
     Active Substance: ISOTRETINOIN
     Dosage: 80 MG, 1X/DAY
     Dates: start: 20190816, end: 20190925
  7. MYORISAN [Suspect]
     Active Substance: ISOTRETINOIN
     Indication: ACNE CYSTIC
     Dosage: 40 MG, 1X/DAY
     Dates: start: 20190612, end: 20190708

REACTIONS (3)
  - Off label use [Recovered/Resolved]
  - Skin discomfort [Unknown]
  - Epilepsy [Not Recovered/Not Resolved]

NARRATIVE: CASE EVENT DATE: 20190612
